FAERS Safety Report 11650868 (Version 1)
Quarter: 2015Q4

REPORT INFORMATION
  Report Type: Spontaneous
  Country: US (occurrence: US)
  Receive Date: 20151021
  Receipt Date: 20151021
  Transmission Date: 20160304
  Serious: No
  Sender: FDA-Public Use
  Company Number: US-PFIZER INC-2015351663

PATIENT
  Age: 3 Year
  Sex: Male
  Weight: 10 kg

DRUGS (3)
  1. GENOTROPIN [Suspect]
     Active Substance: SOMATROPIN
     Indication: SMALL FOR DATES BABY
     Dosage: 0.4 MG (1 SHOT), DAILY
     Dates: start: 20151002
  2. PERIACTIN [Concomitant]
     Active Substance: CYPROHEPTADINE HYDROCHLORIDE
     Dosage: 5 ML, 2X/DAY, MORNING AND NIGHT
     Route: 048
  3. FLINTSTONES [Concomitant]
     Dosage: 1/2 OF A FLINTSTONE VITAMIN 2-3 TIMES A WEEK

REACTIONS (3)
  - Vomiting [Unknown]
  - Secretion discharge [Unknown]
  - Cough [Not Recovered/Not Resolved]

NARRATIVE: CASE EVENT DATE: 20151004
